FAERS Safety Report 4279240-0 (Version None)
Quarter: 2004Q1

REPORT INFORMATION
  Report Type: 
  Country: None (occurrence: None)
  Receive Date: 20040127
  Receipt Date: 20040119
  Transmission Date: 20041129
  Serious: Yes (Disabling, Other)
  Sender: FDA-Public Use
  Company Number: PHBS2004EC01016

PATIENT
  Age: 71 Year
  Sex: Male

DRUGS (4)
  1. TRILEPTAL [Suspect]
     Indication: NEUROPATHIC PAIN
     Dosage: 750 MG/DAY
     Route: 048
     Dates: start: 20031227
  2. TRILEPTAL [Suspect]
     Dosage: 150 MG, BID
     Route: 048
  3. SOMESE [Concomitant]
     Dosage: 0.25 MG/DAY
     Route: 048
     Dates: start: 20031227
  4. ACETAMINOPHEN W/ CODEINE [Concomitant]
     Dosage: 1 TABLET/DAY
     Route: 048
     Dates: start: 20031227

REACTIONS (8)
  - ATAXIA [None]
  - BRAIN OEDEMA [None]
  - DEPRESSION [None]
  - DIZZINESS [None]
  - FALL [None]
  - SKIN LACERATION [None]
  - SOMNOLENCE [None]
  - VERTIGO [None]
